FAERS Safety Report 16052517 (Version 1)
Quarter: 2019Q1

REPORT INFORMATION
  Report Type: Spontaneous
  Country: GB (occurrence: GB)
  Receive Date: 20190308
  Receipt Date: 20190308
  Transmission Date: 20190418
  Serious: Yes (Hospitalization)
  Sender: FDA-Public Use
  Company Number: GB-009507513-1903GBR001722

PATIENT
  Age: 87 Year
  Sex: Female
  Weight: 59 kg

DRUGS (2)
  1. ASPIRIN. [Concomitant]
     Active Substance: ASPIRIN
     Dosage: STOPPED.
  2. SIMVASTATIN. [Suspect]
     Active Substance: SIMVASTATIN
     Indication: PROPHYLAXIS
     Dosage: AT NIGHT.
     Route: 048
     Dates: start: 20121005, end: 20190118

REACTIONS (1)
  - Haemorrhage intracranial [Recovering/Resolving]

NARRATIVE: CASE EVENT DATE: 20190118
